FAERS Safety Report 8839765 (Version 1)
Quarter: 2012Q4

REPORT INFORMATION
  Report Type: Report from Study
  Country: AT (occurrence: AT)
  Receive Date: 20121015
  Receipt Date: 20121015
  Transmission Date: 20130627
  Serious: Yes (Hospitalization)
  Sender: FDA-Public Use
  Company Number: AT-NOVOPROD-343452

PATIENT
  Age: 67 Year
  Sex: Male
  Weight: 125 kg

DRUGS (2)
  1. LIRAGLUTIDE FLEXPEN [Suspect]
     Indication: TYPE 2 DIABETES MELLITUS
     Dosage: 1.2 mg, qd
     Route: 058
     Dates: start: 20120105, end: 20120121
  2. LIRAGLUTIDE FLEXPEN [Suspect]
     Dosage: 0.6 mg, qd
     Route: 058
     Dates: start: 20120125

REACTIONS (1)
  - Gastroenteritis viral [Recovered/Resolved]
